FAERS Safety Report 15001051 (Version 1)
Quarter: 2018Q2

REPORT INFORMATION
  Report Type: Spontaneous
  Country: US (occurrence: US)
  Receive Date: 20180521
  Receipt Date: 20180521
  Transmission Date: 20180711
  Serious: Yes (Hospitalization, Other)
  Sender: FDA-Public Use
  Company Number: None

PATIENT
  Age: 66 Year
  Sex: Female
  Weight: 108.41 kg

DRUGS (14)
  1. IMITREX [Concomitant]
     Active Substance: SUMATRIPTAN SUCCINATE
  2. PROLIA [Suspect]
     Active Substance: DENOSUMAB
     Indication: OSTEOPOROSIS
     Dosage: ?          QUANTITY:0.65 MG/ML - MILLLIGRAMS PER MILLILITRES;OTHER FREQUENCY:EVERY 6 MTHS;?
     Route: 058
     Dates: start: 20170217, end: 20170810
  3. CALCIUM + D [Concomitant]
     Active Substance: CALCIUM\VITAMIN D
  4. PROTONIX [Concomitant]
     Active Substance: PANTOPRAZOLE SODIUM
  5. GABAPENTIN. [Concomitant]
     Active Substance: GABAPENTIN
  6. POTASSIUM CHLORIDE. [Concomitant]
     Active Substance: POTASSIUM CHLORIDE
  7. SUCRALFATE. [Concomitant]
     Active Substance: SUCRALFATE
  8. ANTIHISTAMINE DECONGESTANT [Concomitant]
  9. PROPRANOLOL [Concomitant]
     Active Substance: PROPRANOLOL HYDROCHLORIDE
  10. CLOTRIMAZOLE AF [Concomitant]
  11. OPTISOURCE [Concomitant]
  12. CRANBERRY. [Concomitant]
     Active Substance: CRANBERRY
  13. CVS VITAMIN D3 [Concomitant]
  14. ZOLPIDEM [Concomitant]
     Active Substance: ZOLPIDEM\ZOLPIDEM TARTRATE

REACTIONS (4)
  - Femur fracture [None]
  - Hip fracture [None]
  - Stress fracture [None]
  - Groin pain [None]

NARRATIVE: CASE EVENT DATE: 20170810
